FAERS Safety Report 23044222 (Version 2)
Quarter: 2023Q4

REPORT INFORMATION
  Report Type: Spontaneous
  Country: EE (occurrence: EE)
  Receive Date: 20231009
  Receipt Date: 20231020
  Transmission Date: 20240109
  Serious: Yes (Other)
  Sender: FDA-Public Use
  Company Number: EE-ABBVIE-5436715

PATIENT
  Age: 73 Year

DRUGS (5)
  1. GLECAPREVIR\PIBRENTASVIR [Suspect]
     Active Substance: GLECAPREVIR\PIBRENTASVIR
     Indication: Chronic hepatitis C
     Dosage: 300/120 MG
     Route: 048
     Dates: start: 20230525, end: 20230719
  2. METOPROLOL [Concomitant]
     Active Substance: METOPROLOL
     Indication: Hypertonia
     Dosage: 50 MILLIGRAM
     Route: 048
  3. PANTOPRAZOLE SODIUM [Concomitant]
     Active Substance: PANTOPRAZOLE SODIUM
     Indication: Hypertonia
     Dosage: 40 MILLIGRAMS
     Route: 048
  4. METFORMIN [Concomitant]
     Active Substance: METFORMIN HYDROCHLORIDE
     Indication: Diabetes mellitus
     Dosage: 1000 MILLIGRAMS
     Route: 048
  5. Cardace [Concomitant]
     Indication: Hypertonia
     Dosage: 6 MILLIGRAMS
     Route: 048

REACTIONS (7)
  - Mononeuropathy multiplex [Recovering/Resolving]
  - Hypoaesthesia [Unknown]
  - Bacterial infection [Unknown]
  - Viral infection [Unknown]
  - Pain in extremity [Recovering/Resolving]
  - Peripheral swelling [Recovered/Resolved]
  - Muscular weakness [Unknown]

NARRATIVE: CASE EVENT DATE: 20230101
